FAERS Safety Report 14459481 (Version 4)
Quarter: 2018Q1

REPORT INFORMATION
  Report Type: Report from Study
  Country: JP (occurrence: JP)
  Receive Date: 20180130
  Receipt Date: 20180214
  Transmission Date: 20180509
  Serious: Yes (Hospitalization)
  Sender: FDA-Public Use
  Company Number: JP-B.I. PHARMACEUTICALS,INC./RIDGEFIELD-2018-BI-003797

PATIENT
  Age: 56 Year
  Sex: Female
  Weight: 69 kg

DRUGS (25)
  1. FEBRICET [Concomitant]
     Indication: HYPERTENSION
     Route: 048
     Dates: start: 20170502
  2. TRESIBA [Concomitant]
     Active Substance: INSULIN DEGLUDEC
     Indication: DIABETES MELLITUS
     Route: 058
     Dates: start: 20170529, end: 20180131
  3. EMPAGLIFLOZIN [Suspect]
     Active Substance: EMPAGLIFLOZIN
     Indication: CARDIAC FAILURE
     Route: 048
     Dates: start: 20171124
  4. BISOPROLOL FUMARATE. [Concomitant]
     Active Substance: BISOPROLOL FUMARATE
     Indication: HYPERTENSION
     Route: 048
     Dates: start: 20170108, end: 20180122
  5. URSODEOXY CHOLIC ACID [Concomitant]
     Route: 048
     Dates: start: 20171222
  6. POSTERISAN FORTE [Concomitant]
     Active Substance: LIDOCAINE
     Indication: PROPHYLAXIS
     Route: 061
     Dates: start: 20171222
  7. BAYASPIRIN [Concomitant]
     Active Substance: ASPIRIN
     Indication: CARDIAC FAILURE
     Route: 048
     Dates: start: 20170428, end: 20180121
  8. CRESTOR OD [Concomitant]
     Active Substance: ROSUVASTATIN CALCIUM
     Indication: HYPERCHOLESTEROLAEMIA
     Route: 048
     Dates: start: 20170428
  9. ZETIA [Concomitant]
     Active Substance: EZETIMIBE
     Indication: HYPERCHOLESTEROLAEMIA
     Route: 048
     Dates: start: 20170714
  10. GOREISAN [Concomitant]
     Active Substance: HERBALS
     Indication: PROPHYLAXIS
     Route: 048
     Dates: start: 20171027
  11. EFIENT [Concomitant]
     Active Substance: PRASUGREL HYDROCHLORIDE
     Indication: CARDIAC FAILURE
     Route: 048
     Dates: start: 20170506
  12. ATELEC [Concomitant]
     Active Substance: CILNIDIPINE
     Indication: HYPERTENSION
     Route: 048
     Dates: start: 20170623, end: 20180122
  13. SHINBUTO [Concomitant]
     Indication: PROPHYLAXIS
     Route: 048
     Dates: start: 20170714
  14. HOCHUEKKITO [Concomitant]
     Active Substance: HERBALS
     Indication: PROPHYLAXIS
     Route: 048
     Dates: start: 20170630
  15. LANSOPRAZOLE. [Concomitant]
     Active Substance: LANSOPRAZOLE
     Indication: PROPHYLAXIS
     Route: 048
     Dates: start: 20170503
  16. ENALAPRIL [Concomitant]
     Active Substance: ENALAPRIL
     Indication: HYPERTENSION
     Route: 048
     Dates: start: 20170501
  17. URSODEOXY CHOLIC ACID [Concomitant]
     Indication: PROPHYLAXIS
     Route: 048
     Dates: start: 20170907, end: 20171221
  18. TRAZENTA [Concomitant]
     Active Substance: LINAGLIPTIN
     Indication: DIABETES MELLITUS
     Route: 048
     Dates: start: 20170504
  19. MAOBUSHISAISHINTO [Concomitant]
     Active Substance: HERBALS
     Indication: PROPHYLAXIS
     Route: 048
     Dates: start: 20170929
  20. SERENAL [Concomitant]
     Active Substance: OXAZOLAM
     Indication: NEUROSIS
     Route: 048
     Dates: start: 20171027
  21. URSODEOXYCHOLIC ACID [Concomitant]
     Active Substance: URSODIOL
     Indication: PROPHYLAXIS
     Route: 048
     Dates: start: 20171222
  22. GOREISANRYO [Concomitant]
     Indication: PRODUCT USED FOR UNKNOWN INDICATION
     Route: 065
     Dates: start: 20180122
  23. AZOSEMIDE [Concomitant]
     Active Substance: AZOSEMIDE
     Indication: POLYURIA
     Route: 048
     Dates: start: 20170520
  24. ADONA [Concomitant]
     Active Substance: CARBAZOCHROME SODIUM SULFONATE
     Indication: DIABETIC RETINOPATHY
     Route: 048
     Dates: start: 20170517
  25. MAGMITT [Concomitant]
     Active Substance: MAGNESIUM OXIDE
     Indication: CONSTIPATION
     Route: 048
     Dates: start: 20180122

REACTIONS (2)
  - Haemorrhage subcutaneous [Unknown]
  - Vomiting [Recovered/Resolved]

NARRATIVE: CASE EVENT DATE: 20171210
